FAERS Safety Report 19936935 (Version 2)
Quarter: 2021Q4

REPORT INFORMATION
  Report Type: Spontaneous
  Country: US (occurrence: US)
  Receive Date: 20211009
  Receipt Date: 20211125
  Transmission Date: 20220303
  Serious: Yes (Hospitalization, Other)
  Sender: FDA-Public Use
  Company Number: US-AMGEN-USASP2021151571

PATIENT
  Age: 58 Year
  Sex: Male

DRUGS (7)
  1. NPLATE [Suspect]
     Active Substance: ROMIPLOSTIM
     Indication: Immune thrombocytopenia
     Dosage: 500 MICROGRAM, QWK
     Route: 058
     Dates: start: 2012
  2. NPLATE [Suspect]
     Active Substance: ROMIPLOSTIM
     Dosage: 500 MICROGRAM, QWK
     Route: 058
     Dates: start: 20210604, end: 20210624
  3. NPLATE [Suspect]
     Active Substance: ROMIPLOSTIM
     Dosage: 600 MICROGRAM, QWK
     Route: 058
     Dates: start: 20210702, end: 20210723
  4. NPLATE [Suspect]
     Active Substance: ROMIPLOSTIM
     Dosage: 700 MICROGRAM, QWK
     Route: 058
     Dates: start: 20210730, end: 20210813
  5. NPLATE [Suspect]
     Active Substance: ROMIPLOSTIM
     Dosage: 800 MICROGRAM, QWK
     Route: 058
     Dates: start: 20210819, end: 20210910
  6. NPLATE [Suspect]
     Active Substance: ROMIPLOSTIM
     Dosage: 900 MICROGRAM, QWK
     Route: 058
     Dates: start: 20210917
  7. MODERNA COVID-19 VACCINE [Suspect]
     Active Substance: CX-024414
     Indication: Product used for unknown indication
     Dosage: UNK
     Route: 065
     Dates: start: 202105

REACTIONS (8)
  - Mouth haemorrhage [Recovered/Resolved]
  - Immune thrombocytopenia [Unknown]
  - Therapeutic response decreased [Unknown]
  - Bronchitis viral [Unknown]
  - COVID-19 [Unknown]
  - Petechiae [Unknown]
  - Wrong technique in product usage process [Unknown]
  - Influenza [Unknown]

NARRATIVE: CASE EVENT DATE: 20200101
